FAERS Safety Report 18933348 (Version 4)
Quarter: 2022Q2

REPORT INFORMATION
  Report Type: Spontaneous
  Country: JP (occurrence: JP)
  Receive Date: 20210224
  Receipt Date: 20220416
  Transmission Date: 20220720
  Serious: Yes (Death, Hospitalization, Other)
  Sender: FDA-Public Use
  Company Number: JP-BRISTOL-MYERS SQUIBB COMPANY-BMS-2021-016638

PATIENT
  Age: 59 Year
  Sex: Male
  Weight: 44.1 kg

DRUGS (1)
  1. OPDIVO [Suspect]
     Active Substance: NIVOLUMAB
     Indication: Non-small cell lung cancer recurrent
     Dosage: 240 MILLIGRAM
     Route: 041
     Dates: start: 20190813, end: 20190913

REACTIONS (5)
  - Oesophagobronchial fistula [Recovering/Resolving]
  - Asphyxia [Fatal]
  - Sputum retention [Fatal]
  - Pneumonia aspiration [Recovering/Resolving]
  - Acute respiratory distress syndrome [Recovering/Resolving]

NARRATIVE: CASE EVENT DATE: 20190920
